FAERS Safety Report 5052863-7 (Version None)
Quarter: 2006Q3

REPORT INFORMATION
  Report Type: 
  Country: None (occurrence: None)
  Receive Date: 20060712
  Receipt Date: 20060703
  Transmission Date: 20061208
  Serious: Yes (Hospitalization)
  Sender: FDA-Public Use
  Company Number: 2006BI009498

PATIENT
  Age: 45 Year
  Sex: Male
  Weight: 91.173 kg

DRUGS (1)
  1. AVONEX [Suspect]
     Indication: MULTIPLE SCLEROSIS
     Dosage: 30 UG; QW; IM
     Route: 030
     Dates: start: 19960101

REACTIONS (5)
  - ANAEMIA [None]
  - BACTERIA STOOL IDENTIFIED [None]
  - BLOOD PRESSURE DECREASED [None]
  - GASTROINTESTINAL INFECTION [None]
  - WHITE BLOOD CELL COUNT INCREASED [None]
